FAERS Safety Report 4555821-1 (Version None)
Quarter: 2005Q1

REPORT INFORMATION
  Report Type: 
  Country: None (occurrence: None)
  Receive Date: 20050112
  Receipt Date: 20040715
  Transmission Date: 20050727
  Serious: Yes (Other)
  Sender: FDA-Public Use
  Company Number: 200419226BWH

PATIENT
  Age: 63 Year
  Sex: Female
  Weight: 63.5036 kg

DRUGS (3)
  1. CIPRO [Suspect]
     Indication: CYSTITIS
     Dosage: ONCE, ORAL
     Route: 048
     Dates: start: 20021201
  2. CORTICOSTEROID [Concomitant]
  3. ANTIBIOTIC [Concomitant]

REACTIONS (4)
  - PAIN IN EXTREMITY [None]
  - RASH GENERALISED [None]
  - TENDON DISORDER [None]
  - TENDONITIS [None]
